FAERS Safety Report 21861620 (Version 2)
Quarter: 2023Q1

REPORT INFORMATION
  Report Type: Spontaneous
  Country: PH (occurrence: PH)
  Receive Date: 20230113
  Receipt Date: 20230124
  Transmission Date: 20230417
  Serious: Yes (Death, Life-Threatening, Hospitalization)
  Sender: FDA-Public Use
  Company Number: PH-PFIZER INC-PV202200003607

PATIENT
  Age: 49 Year
  Sex: Female
  Weight: 42 kg

DRUGS (1)
  1. XALKORI [Suspect]
     Active Substance: CRIZOTINIB
     Indication: Lung neoplasm malignant
     Dosage: 250 MG, 2X/DAY
     Route: 048
     Dates: start: 20190502

REACTIONS (3)
  - Pneumonia [Fatal]
  - Sepsis [Fatal]
  - Speech disorder [Unknown]

NARRATIVE: CASE EVENT DATE: 20220101
